FAERS Safety Report 21246913 (Version 3)
Quarter: 2022Q4

REPORT INFORMATION
  Report Type: Report from Study
  Country: US (occurrence: US)
  Receive Date: 20220824
  Receipt Date: 20221007
  Transmission Date: 20230113
  Serious: Yes (Hospitalization, Other)
  Sender: FDA-Public Use
  Company Number: US-TAKEDA-2022TUS056886

PATIENT
  Age: 0 Year
  Sex: Male
  Weight: 2.863 kg

DRUGS (9)
  1. VEDOLIZUMAB [Suspect]
     Active Substance: VEDOLIZUMAB
     Indication: Colitis ulcerative
     Dosage: UNK
     Route: 065
     Dates: start: 20160915, end: 20200630
  2. ASPIRIN [Concomitant]
     Active Substance: ASPIRIN
     Dosage: 81 MILLIGRAM, QD
     Route: 048
     Dates: start: 20200530, end: 20201003
  3. CALCIUM [Concomitant]
     Active Substance: CALCIUM
     Dosage: 60 MILLIGRAM
     Route: 048
     Dates: start: 20200409, end: 20201003
  4. HEPARIN [Concomitant]
     Active Substance: HEPARIN SODIUM
     Dosage: UNK
     Route: 042
     Dates: start: 20200114, end: 20201003
  5. IRON [Concomitant]
     Active Substance: IRON
     Indication: Anaemia
     Dosage: 324 MILLIGRAM
     Route: 048
     Dates: start: 20200624, end: 20201003
  6. PROTONIX [Concomitant]
     Active Substance: PANTOPRAZOLE SODIUM
     Indication: Dyspepsia
     Dosage: 20 MILLIGRAM
     Route: 048
     Dates: start: 20200114, end: 20200507
  7. PROTONIX [Concomitant]
     Active Substance: PANTOPRAZOLE SODIUM
     Indication: Nausea
     Dosage: 40 MILLIGRAM
     Route: 048
     Dates: start: 20200904, end: 20201003
  8. PROTONIX [Concomitant]
     Active Substance: PANTOPRAZOLE SODIUM
     Indication: Abdominal discomfort
  9. TUMS [Concomitant]
     Active Substance: CALCIUM CARBONATE
     Indication: Dyspepsia
     Dosage: UNK
     Route: 048
     Dates: start: 20200612, end: 20201003

REACTIONS (4)
  - Pneumonia bacterial [Unknown]
  - Gastroenteritis viral [Unknown]
  - Respiratory syncytial virus infection [Unknown]
  - Foetal exposure during pregnancy [Unknown]

NARRATIVE: CASE EVENT DATE: 20210910
